FAERS Safety Report 14648405 (Version 4)
Quarter: 2022Q4

REPORT INFORMATION
  Report Type: Report from Study
  Country: US (occurrence: US)
  Receive Date: 20180316
  Receipt Date: 20221027
  Transmission Date: 20230113
  Serious: Yes (Hospitalization, Other)
  Sender: FDA-Public Use
  Company Number: US-GILEAD-2018-0314410

PATIENT
  Age: 63 Year
  Sex: Male

DRUGS (8)
  1. AMBRISENTAN [Suspect]
     Active Substance: AMBRISENTAN
     Indication: Pulmonary arterial hypertension
     Dosage: 10 MG QD
     Route: 065
     Dates: start: 20140207
  2. AMBRISENTAN [Suspect]
     Active Substance: AMBRISENTAN
     Dosage: UNK
     Route: 065
     Dates: start: 20190724
  3. ADEMPAS [Suspect]
     Active Substance: RIOCIGUAT
     Indication: Pulmonary arterial hypertension
     Dosage: 2.5 MG, TID
     Route: 065
     Dates: start: 202109
  4. REMODULIN [Suspect]
     Active Substance: TREPROSTINIL
     Indication: Pulmonary arterial hypertension
     Dosage: 120 NANOGRAM PER MINUTE
     Route: 065
     Dates: start: 202103, end: 20220921
  5. WARFARIN [Concomitant]
     Active Substance: WARFARIN
     Indication: Product used for unknown indication
     Route: 065
  6. ADCIRCA [Concomitant]
     Active Substance: TADALAFIL
  7. ORENITRAM [Concomitant]
     Active Substance: TREPROSTINIL
  8. OXYGEN [Concomitant]
     Active Substance: OXYGEN

REACTIONS (30)
  - Pneumonia [Unknown]
  - Vascular rupture [Unknown]
  - International normalised ratio increased [Unknown]
  - Pneumonia fungal [Unknown]
  - Pulmonary pain [Unknown]
  - Haemoptysis [Unknown]
  - Pneumonitis [Unknown]
  - Lung transplant [Unknown]
  - Prothrombin time prolonged [Unknown]
  - Dyspnoea [Unknown]
  - Weight increased [Unknown]
  - Productive cough [Unknown]
  - Sputum discoloured [Not Recovered/Not Resolved]
  - Chest discomfort [Unknown]
  - Diarrhoea [Not Recovered/Not Resolved]
  - Flatulence [Not Recovered/Not Resolved]
  - Chest discomfort [Not Recovered/Not Resolved]
  - Change of bowel habit [Not Recovered/Not Resolved]
  - Productive cough [Unknown]
  - Sleep disorder [Unknown]
  - Headache [Not Recovered/Not Resolved]
  - Constipation [Not Recovered/Not Resolved]
  - Nasal congestion [Recovering/Resolving]
  - Dyspnoea [Unknown]
  - Dizziness [Unknown]
  - Flushing [Not Recovered/Not Resolved]
  - Pain in extremity [Not Recovered/Not Resolved]
  - Fatigue [Not Recovered/Not Resolved]
  - Unevaluable event [Unknown]
  - Pulmonary mass [Not Recovered/Not Resolved]
